FAERS Safety Report 24211121 (Version 1)
Quarter: 2024Q3

REPORT INFORMATION
  Report Type: Spontaneous
  Country: CH (occurrence: CH)
  Receive Date: 20240814
  Receipt Date: 20240814
  Transmission Date: 20241017
  Serious: Yes (Hospitalization, Other)
  Sender: BRISTOL MYERS SQUIBB
  Company Number: None

PATIENT
  Sex: Female

DRUGS (7)
  1. ELIQUIS [Suspect]
     Active Substance: APIXABAN
     Indication: Atrial fibrillation
     Route: 048
     Dates: end: 20240704
  2. BISOPROLOL SPIRIG HC [Concomitant]
     Indication: Product used for unknown indication
  3. AMLODIPINE MESYLATE [Concomitant]
     Active Substance: AMLODIPINE MESYLATE
     Indication: Product used for unknown indication
  4. NIFEDIPIN MEPHA [Concomitant]
     Indication: Product used for unknown indication
  5. VALSARTAN AXAPHARM [Concomitant]
     Indication: Product used for unknown indication
  6. ROSUVASTATIN CALCIUM [Concomitant]
     Active Substance: ROSUVASTATIN CALCIUM
     Indication: Product used for unknown indication
  7. BERIPLEX [FACTOR II (PROTHROMBIN);FACTOR IX;FACTOR VII (PROCONVERTIN); [Concomitant]
     Indication: Product used for unknown indication
     Dosage: 50 U/KG

REACTIONS (4)
  - Cerebral haemorrhage [Recovering/Resolving]
  - Hypertension [Unknown]
  - Right hemisphere deficit syndrome [Unknown]
  - Haematoma [Unknown]

NARRATIVE: CASE EVENT DATE: 20240628
